FAERS Safety Report 24881354 (Version 1)
Quarter: 2025Q1

REPORT INFORMATION
  Report Type: Spontaneous
  Country: US (occurrence: US)
  Receive Date: 20250124
  Receipt Date: 20250124
  Transmission Date: 20250409
  Serious: No
  Sender: APOTEX
  Company Number: US-APOTEX-2025AP001115

PATIENT

DRUGS (2)
  1. GEMCITABINE [Suspect]
     Active Substance: GEMCITABINE
     Indication: Bladder transitional cell carcinoma
     Dosage: 1 GRAM IN 50 ML OF STERILE WATER OR NORMAL SALINE INSTILLED INTO THE BLADDER FOR APPROXIMATELY 90 MI
     Route: 065
  2. DOCETAXEL [Suspect]
     Active Substance: DOCETAXEL
     Indication: Bladder transitional cell carcinoma
     Dosage: 37.5  IN 50 ML OF SALINE FOR APPROXIMATELY 90 TO 120 MINUTES
     Route: 065

REACTIONS (1)
  - Urinary tract infection [Unknown]
